FAERS Safety Report 13347317 (Version 3)
Quarter: 2017Q2

REPORT INFORMATION
  Report Type: Spontaneous
  Country: JP (occurrence: JP)
  Receive Date: 20170317
  Receipt Date: 20170526
  Transmission Date: 20170830
  Serious: Yes (Death, Other)
  Sender: FDA-Public Use
  Company Number: JP-ALLERGAN-1709954US

PATIENT
  Age: 86 Year
  Sex: Female

DRUGS (6)
  1. MEMANTINE HCL - BP [Suspect]
     Active Substance: MEMANTINE
     Dosage: 10 MG, QD
     Route: 048
     Dates: start: 20160902, end: 20160909
  2. MEMANTINE HCL - BP [Suspect]
     Active Substance: MEMANTINE
     Dosage: 15 MG, QD
     Route: 048
     Dates: start: 20160913
  3. MEMANTINE HCL - BP [Suspect]
     Active Substance: MEMANTINE
     Indication: PRODUCT USED FOR UNKNOWN INDICATION
     Dosage: 20 MG, QD
     Route: 048
     Dates: start: 201610, end: 201701
  4. MEMANTINE HCL - BP [Suspect]
     Active Substance: MEMANTINE
     Dosage: 5 MG, QD
     Route: 048
     Dates: start: 201609
  5. ARICEPT [Concomitant]
     Active Substance: DONEPEZIL HYDROCHLORIDE
     Dosage: UNK
     Route: 065
     Dates: start: 201609, end: 201610
  6. NEODOPASTON [Suspect]
     Active Substance: CARBIDOPA\LEVODOPA
     Indication: PRODUCT USED FOR UNKNOWN INDICATION
     Dosage: UNK
     Route: 065

REACTIONS (5)
  - Death [Fatal]
  - Pneumonia [Recovered/Resolved]
  - Decreased appetite [Recovering/Resolving]
  - Constipation [Not Recovered/Not Resolved]
  - Pyrexia [Recovered/Resolved]

NARRATIVE: CASE EVENT DATE: 201608
